FAERS Safety Report 7498481-2 (Version None)
Quarter: 2011Q2

REPORT INFORMATION
  Report Type: 
  Country: None (occurrence: None)
  Receive Date: 20110516
  Receipt Date: 20110511
  Transmission Date: 20111010
  Serious: Yes (Life-Threatening, Hospitalization, Disabling)
  Sender: FDA-Public Use
  Company Number: 2011SP001731

PATIENT
  Age: 66 Year
  Sex: Female
  Weight: 59 kg

DRUGS (15)
  1. FAMOTIDINE [Concomitant]
  2. ANTHROBIN P [Concomitant]
  3. HANP [Concomitant]
  4. ALBUMIN (HUMAN) [Concomitant]
  5. BRIDION [Concomitant]
  6. PLATELETS, CONCENTRATED [Concomitant]
  7. NICARPINE [Concomitant]
  8. FUTHAN [Concomitant]
  9. OMEGACIN [Concomitant]
  10. ROCURONIUM BROMIDE [Suspect]
     Indication: RESPIRATORY THERAPY
     Dosage: 50 MG;Q3H;IV
     Route: 042
     Dates: start: 20101219, end: 20101223
  11. FRESH FROZEN PLASMA [Concomitant]
  12. ELASPOL (SIVELSTAT SODIUM HYDRATE) [Concomitant]
  13. RED BLOOD CELLS, CONCENTRATED [Concomitant]
  14. PROPOFOL [Suspect]
     Indication: SEDATIVE THERAPY
     Dosage: 1 GM;QD;IV
     Route: 042
     Dates: start: 20101216, end: 20101225
  15. FENTANYL [Suspect]
     Indication: SEDATIVE THERAPY
     Dosage: IV
     Route: 042
     Dates: start: 20101216, end: 20101224

REACTIONS (10)
  - MUSCULAR WEAKNESS [None]
  - DELAYED RECOVERY FROM ANAESTHESIA [None]
  - PARALYSIS FLACCID [None]
  - NEUROMUSCULAR BLOCK PROLONGED [None]
  - RENAL FAILURE ACUTE [None]
  - ALTERED STATE OF CONSCIOUSNESS [None]
  - ACUTE RESPIRATORY DISTRESS SYNDROME [None]
  - CRANIAL NERVE DISORDER [None]
  - CONTINUOUS HAEMODIAFILTRATION [None]
  - DRUG CLEARANCE DECREASED [None]
